FAERS Safety Report 11198483 (Version 1)
Quarter: 2015Q2

REPORT INFORMATION
  Report Type: Spontaneous
  Country: US (occurrence: None)
  Receive Date: 20150616
  Receipt Date: 20150616
  Transmission Date: 20150821
  Serious: Yes (Hospitalization)
  Sender: FDA-Public Use
  Company Number: INS201506-000238

PATIENT
  Age: 42 Year
  Sex: Female
  Weight: 85.28 kg

DRUGS (4)
  1. NORCO [Concomitant]
     Active Substance: ACETAMINOPHEN\HYDROCODONE BITARTRATE
  2. PERCOCET (ACETAMINOPHEN, OXYCODONE) [Concomitant]
  3. SUBSYS [Suspect]
     Active Substance: FENTANYL
     Indication: PAIN
     Dosage: (200 MCG,2-4 HRS)
     Dates: start: 201502
  4. MS CONTIN (MORPHINE) [Concomitant]

REACTIONS (2)
  - Off label use [None]
  - Neck surgery [None]

NARRATIVE: CASE EVENT DATE: 20150511
